FAERS Safety Report 16290139 (Version 1)
Quarter: 2019Q2

REPORT INFORMATION
  Report Type: Spontaneous
  Country: US (occurrence: US)
  Receive Date: 20190403
  Receipt Date: 20190403
  Transmission Date: 20190711
  Serious: Yes (Other)
  Sender: FDA-Public Use
  Company Number: None

PATIENT
  Age: 67 Year
  Sex: Female

DRUGS (22)
  1. KETOCONAZOLE TOP SHAMPOO [Concomitant]
  2. ANECREAM5 TOP CREAM [Concomitant]
  3. HYDROCLOROTHIAZIDE [Concomitant]
     Active Substance: HYDROCHLOROTHIAZIDE
  4. DILULOZEM [Concomitant]
  5. BISACODYL. [Concomitant]
     Active Substance: BISACODYL
  6. METOCLOPRAMIDE. [Concomitant]
     Active Substance: METOCLOPRAMIDE
  7. FLUOCINONIDE TOP CREAM [Concomitant]
  8. OXYCODONE [Concomitant]
     Active Substance: OXYCODONE
  9. CEPHALEXIN. [Concomitant]
     Active Substance: CEPHALEXIN
  10. SILDONAFIL [Concomitant]
  11. DOCUSATES [Concomitant]
  12. BUSPIRONE [Concomitant]
     Active Substance: BUSPIRONE HYDROCHLORIDE
  13. ODIUM [Concomitant]
  14. ASPIRIN. [Concomitant]
     Active Substance: ASPIRIN
  15. TRACLEER [Suspect]
     Active Substance: BOSENTAN
     Indication: PULMONARY ARTERIAL HYPERTENSION
     Dosage: ?          OTHER DOSE:62.5 MG;?
     Route: 048
     Dates: start: 201710, end: 201902
  16. ONDANSETRON [Concomitant]
     Active Substance: ONDANSETRON
  17. DOXYCYCLINE. [Concomitant]
     Active Substance: DOXYCYCLINE
  18. NYSTATIN-TRIAMCINOLONE TOP OINT [Concomitant]
  19. MVF WITH VIT K [Concomitant]
  20. SONNA LEAF EXTRACT [Concomitant]
  21. PANTOPRAZOLA [Concomitant]
  22. BETAMETHASONE DIPROPIONATE TOP OINT [Concomitant]

REACTIONS (3)
  - Therapy cessation [None]
  - Off label use [None]
  - Peripheral swelling [None]

NARRATIVE: CASE EVENT DATE: 20190215
